FAERS Safety Report 12554496 (Version 2)
Quarter: 2016Q3

REPORT INFORMATION
  Report Type: Report from Study
  Country: US (occurrence: US)
  Receive Date: 20160713
  Receipt Date: 20160907
  Transmission Date: 20161109
  Serious: Yes (Other)
  Sender: FDA-Public Use
  Company Number: US-PFIZER INC-2016336070

PATIENT
  Sex: Female

DRUGS (2)
  1. PYRIBENZAMINE [Suspect]
     Active Substance: TRIPELENNAMINE HYDROCHLORIDE
     Dosage: UNK
     Route: 042
  2. PENTAZOCINE LACTATE [Suspect]
     Active Substance: PENTAZOCINE LACTATE
     Dosage: UNK
     Route: 042

REACTIONS (1)
  - Drug abuse [Unknown]
